FAERS Safety Report 4445735-X (Version None)
Quarter: 2004Q3

REPORT INFORMATION
  Report Type: 
  Country: None (occurrence: None)
  Receive Date: 20040903
  Receipt Date: 20040824
  Transmission Date: 20050211
  Serious: Yes (Life-Threatening)
  Sender: FDA-Public Use
  Company Number: 2004-BP-07206AU

PATIENT
  Age: 79 Year
  Sex: Female

DRUGS (5)
  1. ASASANTIN SR (CAPSULE, LONG ACTING) [Suspect]
     Dosage: 400/50 MG PO
     Route: 048
  2. OMEPRAZOLE [Suspect]
     Dosage: 20 MG
  3. CELECOXIB [Suspect]
     Dosage: 200 MG (200 MG DAILY) PO
     Route: 048
  4. DIGOXIN [Suspect]
     Dosage: 125 MCG (125 MCG DAILYP
  5. CARVEDILOL [Suspect]
     Dosage: 12.5 MG (12.5 MG DAILY)

REACTIONS (6)
  - BRADYCARDIA [None]
  - CARDIOACTIVE DRUG LEVEL INCREASED [None]
  - HYPOTENSION [None]
  - NAUSEA [None]
  - THERAPEUTIC AGENT TOXICITY [None]
  - VOMITING [None]
